FAERS Safety Report 13642266 (Version 1)
Quarter: 2017Q2

REPORT INFORMATION
  Report Type: Spontaneous
  Country: DE (occurrence: DE)
  Receive Date: 20170612
  Receipt Date: 20170612
  Transmission Date: 20170830
  Serious: Yes (Disabling, Other)
  Sender: FDA-Public Use
  Company Number: DE-JNJFOC-20170608431

PATIENT
  Sex: Male
  Weight: 100 kg

DRUGS (10)
  1. TRAMAL [Suspect]
     Active Substance: TRAMADOL
     Indication: PLEURISY
     Route: 048
  2. TRAMAL [Suspect]
     Active Substance: TRAMADOL
     Indication: PELVIC FRACTURE
     Route: 048
  3. TRAMAL [Suspect]
     Active Substance: TRAMADOL
     Indication: PLEURISY
     Route: 048
  4. TRAMAL [Suspect]
     Active Substance: TRAMADOL
     Indication: PLEURISY
     Route: 048
  5. TRAMAL [Suspect]
     Active Substance: TRAMADOL
     Indication: PELVIC FRACTURE
     Route: 048
  6. TRAMAL [Suspect]
     Active Substance: TRAMADOL
     Indication: PELVIC FRACTURE
     Route: 048
  7. TRAMAL [Suspect]
     Active Substance: TRAMADOL
     Indication: SPINAL FRACTURE
     Route: 048
  8. TRAMAL [Suspect]
     Active Substance: TRAMADOL
     Indication: SPINAL FRACTURE
     Route: 048
  9. TRITTICO [Concomitant]
     Active Substance: TRAZODONE HYDROCHLORIDE
     Indication: PRODUCT USED FOR UNKNOWN INDICATION
     Route: 048
  10. TRAMAL [Suspect]
     Active Substance: TRAMADOL
     Indication: SPINAL FRACTURE
     Route: 048

REACTIONS (7)
  - Headache [Not Recovered/Not Resolved]
  - Overdose [Recovered/Resolved]
  - Dyspnoea [Not Recovered/Not Resolved]
  - Paranoia [Not Recovered/Not Resolved]
  - Dizziness [Not Recovered/Not Resolved]
  - Palpitations [Not Recovered/Not Resolved]
  - Panic attack [Not Recovered/Not Resolved]
